FAERS Safety Report 9302406 (Version 1)
Quarter: 2013Q2

REPORT INFORMATION
  Report Type: Spontaneous
  Country: BR (occurrence: None)
  Receive Date: 20130517
  Receipt Date: 20130517
  Transmission Date: 20140414
  Serious: Yes (Hospitalization, Other)
  Sender: FDA-Public Use
  Company Number: BR-1198211

PATIENT
  Age: 71 Year
  Sex: Female
  Weight: 94 kg

DRUGS (5)
  1. TRAVATAN 0.004 % OPHTHALMIC SOLUTION (TRAVATAN 0.004%) [Suspect]
     Indication: INTRAOCULAR PRESSURE INCREASED
     Route: 047
  2. ATENOLOL [Concomitant]
  3. SIMVASTATINA [Concomitant]
  4. HIDROCLOROTIAZIDA [Concomitant]
  5. LOSARTANA POTASSICA [Concomitant]

REACTIONS (4)
  - Cardiac operation [None]
  - Blood pressure increased [None]
  - Oedema peripheral [None]
  - Cerebrovascular accident [None]
